FAERS Safety Report 6864419-1 (Version None)
Quarter: 2010Q3

REPORT INFORMATION
  Report Type: 
  Country: None (occurrence: None)
  Receive Date: 20100721
  Receipt Date: 20080320
  Transmission Date: 20110219
  Serious: No
  Sender: FDA-Public Use
  Company Number: US-PFIZER INC-2008027204

PATIENT
  Sex: Male
  Weight: 85.3 kg

DRUGS (3)
  1. CHANTIX [Suspect]
     Indication: SMOKING CESSATION THERAPY
     Dates: start: 20080318, end: 20080320
  2. AMLODIPINE BESYLATE [Concomitant]
     Indication: HYPERTENSION
  3. METOPROLOL TARTRATE [Concomitant]
     Indication: HYPERTENSION

REACTIONS (9)
  - CONSTIPATION [None]
  - FATIGUE [None]
  - MEMORY IMPAIRMENT [None]
  - NERVOUSNESS [None]
  - PSYCHOMOTOR HYPERACTIVITY [None]
  - THINKING ABNORMAL [None]
  - THIRST [None]
  - TOBACCO USER [None]
  - VISION BLURRED [None]
